FAERS Safety Report 5911499-3 (Version None)
Quarter: 2008Q4

REPORT INFORMATION
  Report Type: 
  Country: None (occurrence: None)
  Receive Date: 20081007
  Receipt Date: 20080929
  Transmission Date: 20090506
  Serious: Yes (Hospitalization)
  Sender: FDA-Public Use
  Company Number: GB-MERCK-0810GBR00004

PATIENT
  Age: 8 Year

DRUGS (2)
  1. DECADRON SRC [Suspect]
     Indication: NEOPLASM MALIGNANT
     Route: 048
  2. ANTINEOPLASTIC (UNSPECIFIED) [Suspect]
     Route: 065

REACTIONS (1)
  - VARICELLA [None]
